FAERS Safety Report 11121801 (Version 1)
Quarter: 2015Q2

REPORT INFORMATION
  Report Type: Spontaneous
  Country: DE (occurrence: DE)
  Receive Date: 20150519
  Receipt Date: 20150519
  Transmission Date: 20150821
  Serious: Yes (Other)
  Sender: FDA-Public Use
  Company Number: DE-JNJFOC-20150505932

PATIENT
  Sex: Male

DRUGS (4)
  1. IBUPROFEN. [Suspect]
     Active Substance: IBUPROFEN
     Route: 064
  2. NASIC [Concomitant]
     Active Substance: DEXPANTHENOL\XYLOMETAZOLINE HYDROCHLORIDE
     Indication: NASOPHARYNGITIS
     Route: 045
     Dates: start: 20131207, end: 20131218
  3. FOLIO FORTE (FOLIC ACID, IODINE) [Concomitant]
     Indication: PROPHYLAXIS OF NEURAL TUBE DEFECT
     Route: 048
     Dates: start: 20131107, end: 20140815
  4. IBUPROFEN. [Suspect]
     Active Substance: IBUPROFEN
     Indication: INTERVERTEBRAL DISC PROTRUSION
     Dosage: 800 TO 400 MG/D TAKEN FOR ONE WEEK
     Route: 064

REACTIONS (2)
  - Foetal exposure during pregnancy [Unknown]
  - Foetal heart rate deceleration abnormality [Recovered/Resolved]
